FAERS Safety Report 8989407 (Version 1)
Quarter: 2012Q4

REPORT INFORMATION
  Report Type: 
  Country: None (occurrence: US)
  Receive Date: 20121228
  Receipt Date: 20121228
  Transmission Date: 20130627
  Serious: Yes (Other)
  Sender: FDA-Public Use
  Company Number: US-TEVA-366686USA

PATIENT
  Age: 16 Year
  Sex: Male

DRUGS (1)
  1. CLARAVIS [Suspect]
     Dates: start: 20120917, end: 20121023

REACTIONS (3)
  - Suicidal ideation [Recovered/Resolved]
  - Abnormal behaviour [Unknown]
  - Mood swings [Unknown]
